FAERS Safety Report 9070559 (Version 1)
Quarter: 2013Q1

REPORT INFORMATION
  Report Type: Spontaneous
  Country: US (occurrence: US)
  Receive Date: 20130215
  Receipt Date: 20130215
  Transmission Date: 20140127
  Serious: No
  Sender: FDA-Public Use
  Company Number: -MYLANLABS-2012S1026200

PATIENT
  Age: 64 Year
  Sex: Male
  Weight: 72.58 kg

DRUGS (1)
  1. ITRACONAZOLE [Suspect]
     Indication: ASPERGILLUS INFECTION
     Route: 048
     Dates: start: 201209

REACTIONS (3)
  - Drug effect decreased [Not Recovered/Not Resolved]
  - Wheezing [Not Recovered/Not Resolved]
  - Cough [Not Recovered/Not Resolved]
